FAERS Safety Report 18307545 (Version 1)
Quarter: 2020Q3

REPORT INFORMATION
  Report Type: Spontaneous
  Country: US (occurrence: US)
  Receive Date: 20200924
  Receipt Date: 20200924
  Transmission Date: 20201103
  Serious: No
  Sender: FDA-Public Use
  Company Number: US-009507513-2009USA009200

PATIENT
  Age: 25 Year
  Sex: Female
  Weight: 64.41 kg

DRUGS (1)
  1. NEXPLANON [Suspect]
     Active Substance: ETONOGESTREL
     Dosage: 1 INSERTION EVERY 3 YEARS, RIGHT UPPER ARM (RUA)
     Route: 059
     Dates: start: 20200706, end: 20200706

REACTIONS (2)
  - Product quality issue [Unknown]
  - Complication of device insertion [Unknown]

NARRATIVE: CASE EVENT DATE: 20200706
